FAERS Safety Report 9464366 (Version 3)
Quarter: 2013Q3

REPORT INFORMATION
  Report Type: Spontaneous
  Country: US (occurrence: US)
  Receive Date: 20130819
  Receipt Date: 20130926
  Transmission Date: 20140515
  Serious: Yes (Other)
  Sender: FDA-Public Use
  Company Number: US-PFIZER INC-2013238703

PATIENT
  Age: 51 Year
  Sex: Male
  Weight: 85.71 kg

DRUGS (3)
  1. LOSARTAN [Suspect]
     Indication: HYPERTENSION
     Dosage: 50 MG, DAILY
  2. VIAGRA [Suspect]
     Indication: ERECTILE DYSFUNCTION
     Dosage: 100 MG, UNK
  3. VERAPAMIL HCL [Suspect]
     Indication: HYPERTENSION
     Dosage: 120 MG, 2X/DAY

REACTIONS (3)
  - Diabetes mellitus [Unknown]
  - Renal disorder [Unknown]
  - Erectile dysfunction [Unknown]
